FAERS Safety Report 8510049-5 (Version None)
Quarter: 2012Q2

REPORT INFORMATION
  Report Type: 
  Country: None (occurrence: None)
  Receive Date: 20120405
  Receipt Date: 20090713
  Transmission Date: 20120825
  Serious: Yes (Disabling)
  Sender: FDA-Public Use
  Company Number: PHEH2009US06922

PATIENT
  Age: 67 Year
  Sex: Female
  Weight: 68 kg

DRUGS (16)
  1. CITOSOL (THIAMYLAL) [Concomitant]
  2. CALCIUIM (CALCIUM) [Concomitant]
  3. VITAMIN B6 [Concomitant]
  4. TUMERIC [Concomitant]
  5. ASCORBIC ACID [Concomitant]
  6. LEVBID (HYOSCYAMINE SULFATE) [Concomitant]
  7. LOTEMAX [Concomitant]
  8. BLACK SEED OIL [Concomitant]
  9. RECLAST [Suspect]
     Indication: OSTEOPOROSIS
     Dosage: 5 MG, ONCE/SINGLE, INFUSION
     Dates: start: 20090622, end: 20090622
  10. COSOPT [Concomitant]
  11. SIMVASTATIN [Concomitant]
  12. HYOSCYAMINE (HYOSCYAMINE) [Concomitant]
  13. MAGNESIUM (MAGNESIUM) [Concomitant]
  14. VITAMIN E [Concomitant]
  15. VITAMIN D [Concomitant]
  16. MULTIVITAMINS (ASCORBIC ACID, ERGOCALCIFEROL, FOLIC ACID, NOCOTINAMIDE [Concomitant]

REACTIONS (6)
  - GAIT DISTURBANCE [None]
  - PAIN [None]
  - BREAST PAIN [None]
  - PAIN IN EXTREMITY [None]
  - DIARRHOEA [None]
  - ARTHRALGIA [None]
